FAERS Safety Report 25502949 (Version 2)
Quarter: 2025Q3

REPORT INFORMATION
  Report Type: Spontaneous
  Country: EU (occurrence: EU)
  Receive Date: 20250702
  Receipt Date: 20250715
  Transmission Date: 20251021
  Serious: Yes (Hospitalization)
  Sender: TEVA
  Company Number: EU-TEVA-VS-3345690

PATIENT
  Age: 45 Year
  Sex: Female

DRUGS (6)
  1. CARBAMAZEPINE [Suspect]
     Active Substance: CARBAMAZEPINE
     Indication: Product used for unknown indication
     Route: 065
  2. NITROFURANTOIN [Suspect]
     Active Substance: NITROFURANTOIN
     Indication: Antibiotic therapy
     Route: 065
  3. ESOMEPRAZOLE [Suspect]
     Active Substance: ESOMEPRAZOLE
     Indication: Gastrointestinal disorder prophylaxis
     Route: 065
  4. SULFAMETHOXAZOLE\TRIMETHOPRIM [Suspect]
     Active Substance: SULFAMETHOXAZOLE\TRIMETHOPRIM
     Indication: Antifungal prophylaxis
     Route: 065
  5. MEROPENEM [Suspect]
     Active Substance: MEROPENEM
     Indication: Antibiotic therapy
     Route: 065
  6. RITUXIMAB [Suspect]
     Active Substance: RITUXIMAB
     Indication: Immunosuppressant drug therapy
     Route: 065

REACTIONS (5)
  - Lower respiratory tract infection [Unknown]
  - Acute kidney injury [Recovering/Resolving]
  - Nosocomial infection [Unknown]
  - Drug reaction with eosinophilia and systemic symptoms [Recovering/Resolving]
  - Urinary tract infection [Unknown]
